FAERS Safety Report 8900709 (Version 2)
Quarter: 2012Q4

REPORT INFORMATION
  Report Type: 
  Country: JP (occurrence: JP)
  Receive Date: 20121109
  Receipt Date: 20121130
  Transmission Date: 20130627
  Serious: Yes (Death)
  Sender: FDA-Public Use
  Company Number: JP-SANOFI-AVENTIS-2012SA081734

PATIENT
  Age: 77 Year
  Sex: Male
  Weight: 55 kg

DRUGS (19)
  1. ELPLAT [Suspect]
     Indication: COLON CANCER
     Route: 041
     Dates: start: 20120927, end: 20120927
  2. ELPLAT [Suspect]
     Indication: COLON CANCER
     Route: 041
     Dates: start: 20121019, end: 20121019
  3. XELODA [Suspect]
     Indication: COLON CANCER
     Route: 048
     Dates: start: 20120927, end: 20121011
  4. XELODA [Suspect]
     Indication: COLON CANCER
     Route: 048
     Dates: start: 20121019, end: 20121102
  5. AVASTIN [Suspect]
     Indication: COLON CANCER
     Route: 041
     Dates: start: 20120927, end: 20120927
  6. AVASTIN [Suspect]
     Indication: COLON CANCER
     Route: 041
     Dates: start: 20121019, end: 20121019
  7. CHLOR-TRIMETON [Concomitant]
     Dates: start: 20120927, end: 20121019
  8. DEXAMETHASONE SODIUM PHOSPHATE [Concomitant]
     Dates: start: 20120927, end: 20121019
  9. SAHNE [Concomitant]
     Dates: start: 20120927, end: 20121102
  10. WHITE PETROLATUM [Concomitant]
     Dates: start: 20120927, end: 20121102
  11. GLIMEPIRIDE [Concomitant]
     Dates: start: 20120927, end: 20121102
  12. VOGLIBOSE [Concomitant]
     Dates: start: 20120927, end: 20121102
  13. PIOGLITAZONE [Concomitant]
     Dates: start: 20120927, end: 20121102
  14. SITAGLIPTIN PHOSPHATE [Concomitant]
     Dates: start: 20120927, end: 20121102
  15. AMLODIPINE/VALSARTAN [Concomitant]
     Dates: start: 20120927, end: 20121102
  16. ALOXI [Concomitant]
     Dates: start: 20120927, end: 20121019
  17. FAMOTIDINE [Concomitant]
     Dates: start: 20120927, end: 20121102
  18. NAUZELIN [Concomitant]
     Dates: start: 20120927, end: 20121026
  19. HIRUDOID [Concomitant]
     Dates: start: 20120927, end: 20121102

REACTIONS (4)
  - Dehydration [Fatal]
  - Sepsis [Fatal]
  - Renal failure acute [Fatal]
  - Neuropathy peripheral [Unknown]
